FAERS Safety Report 9251086 (Version 1)
Quarter: 2013Q2

REPORT INFORMATION
  Report Type: Spontaneous
  Country: FR (occurrence: FR)
  Receive Date: 20130424
  Receipt Date: 20130424
  Transmission Date: 20140414
  Serious: Yes (Hospitalization)
  Sender: FDA-Public Use
  Company Number: FR-SANOFI-AVENTIS-2013SA040099

PATIENT
  Age: 87 Year
  Sex: Female

DRUGS (7)
  1. LASILIX [Suspect]
     Indication: HYPERTENSION
     Route: 048
     Dates: end: 201302
  2. CORDARONE [Concomitant]
  3. EBIXA [Concomitant]
     Indication: DEMENTIA ALZHEIMER^S TYPE
  4. EXELON [Concomitant]
     Indication: DEMENTIA ALZHEIMER^S TYPE
     Dosage: 9.5 MG/24 H
     Route: 062
  5. LEVOTHYROX [Concomitant]
     Indication: HYPOTHYROIDISM
     Route: 048
  6. PARACETAMOL [Concomitant]
  7. PREVISCAN [Concomitant]
     Route: 048

REACTIONS (4)
  - Dehydration [Not Recovered/Not Resolved]
  - Renal failure acute [Not Recovered/Not Resolved]
  - Blood creatinine increased [Not Recovered/Not Resolved]
  - Hypernatraemia [Not Recovered/Not Resolved]
